FAERS Safety Report 20995333 (Version 1)
Quarter: 2022Q2

REPORT INFORMATION
  Report Type: Report from Study
  Country: US (occurrence: US)
  Receive Date: 20220622
  Receipt Date: 20220622
  Transmission Date: 20220721
  Serious: Yes (Other)
  Sender: FDA-Public Use
  Company Number: US-HLS-202200552

PATIENT
  Age: 69 Year

DRUGS (1)
  1. CLOZAPINE [Suspect]
     Active Substance: CLOZAPINE
     Indication: Product used for unknown indication
     Route: 048

REACTIONS (7)
  - Neutrophil count decreased [Not Recovered/Not Resolved]
  - Ammonia increased [Recovering/Resolving]
  - Balance disorder [Not Recovered/Not Resolved]
  - COVID-19 [Unknown]
  - Cognitive disorder [Unknown]
  - Fall [Unknown]
  - Somnolence [Not Recovered/Not Resolved]

NARRATIVE: CASE EVENT DATE: 20220525
